FAERS Safety Report 10355313 (Version 2)
Quarter: 2014Q3

REPORT INFORMATION
  Report Type: Spontaneous
  Country: GB (occurrence: GB)
  Receive Date: 20140731
  Receipt Date: 20140731
  Transmission Date: 20150326
  Serious: Yes (Other)
  Sender: FDA-Public Use
  Company Number: PHBS2008GB04650

PATIENT
  Age: 29 Year
  Sex: Female

DRUGS (3)
  1. LATANOPROST. [Suspect]
     Active Substance: LATANOPROST
     Indication: GLAUCOMA
  2. TIMOLOL [Suspect]
     Active Substance: TIMOLOL
     Indication: GLAUCOMA
     Route: 047
  3. APRACLONIDINE [Suspect]
     Active Substance: APRACLONIDINE HYDROCHLORIDE
     Indication: GLAUCOMA

REACTIONS (1)
  - Drug ineffective [Unknown]
